FAERS Safety Report 24272975 (Version 1)
Quarter: 2024Q3

REPORT INFORMATION
  Report Type: Spontaneous
  Country: GB (occurrence: GB)
  Receive Date: 20240902
  Receipt Date: 20240902
  Transmission Date: 20241017
  Serious: Yes (Other)
  Sender: TAKEDA
  Company Number: GB-MHRA-EMIS-727-a0ffcb55-fdf1-4b3a-9f48-0671d067604d

PATIENT
  Age: 43 Year
  Sex: Female

DRUGS (2)
  1. VORTIOXETINE [Suspect]
     Active Substance: VORTIOXETINE HYDROBROMIDE
     Indication: Product used for unknown indication
     Dosage: 5 MILLIGRAM, QD
     Route: 065
  2. MIDODRINE [Concomitant]
     Active Substance: MIDODRINE
     Indication: Product used for unknown indication
     Dosage: 2 DOSAGE FORM, Q8HR
     Route: 065
     Dates: start: 20240613

REACTIONS (1)
  - Hypotension [Unknown]
